FAERS Safety Report 8802291 (Version 2)
Quarter: 2012Q4

REPORT INFORMATION
  Report Type: Report from Study
  Country: FR (occurrence: FR)
  Receive Date: 20120921
  Receipt Date: 20121029
  Transmission Date: 20130627
  Serious: Yes (Hospitalization)
  Sender: FDA-Public Use
  Company Number: FR-ROCHE-1123885

PATIENT
  Age: 82 Year
  Sex: Female
  Weight: 52 kg

DRUGS (10)
  1. RITUXIMAB [Suspect]
     Indication: MANTLE CELL LYMPHOMA
     Route: 041
     Dates: start: 20120625, end: 20120821
  2. BENDAMUSTINE [Suspect]
     Indication: MANTLE CELL LYMPHOMA
     Route: 041
     Dates: start: 20120625, end: 20120822
  3. BORTEZOMIB [Suspect]
     Indication: MANTLE CELL LYMPHOMA
     Route: 058
     Dates: start: 20120625, end: 20120824
  4. DEXAMETHASONE [Suspect]
     Indication: MANTLE CELL LYMPHOMA
     Route: 058
     Dates: start: 20120626, end: 20120822
  5. ACTONEL [Concomitant]
  6. RAMIPRIL [Concomitant]
  7. AMLOR [Concomitant]
  8. NAFTILUX [Concomitant]
  9. CRESTOR [Concomitant]
  10. CLOPIDOGREL [Concomitant]

REACTIONS (1)
  - Orthostatic hypotension [Recovered/Resolved]
